FAERS Safety Report 7729371-5 (Version None)
Quarter: 2011Q3

REPORT INFORMATION
  Report Type: 
  Country: None (occurrence: None)
  Receive Date: 20110906
  Receipt Date: 20110826
  Transmission Date: 20111222
  Serious: Yes (Hospitalization)
  Sender: FDA-Public Use
  Company Number: ES-SANOFI-AVENTIS-2011SA044126

PATIENT
  Age: 82 Year
  Sex: Male
  Weight: 66 kg

DRUGS (11)
  1. CARVEDILOL [Concomitant]
     Dosage: 25 MG 1-0-1/2
  2. TEBETANE COMPUESTO [Concomitant]
     Dosage: 1-0-1
  3. DRONEDARONE HCL [Suspect]
     Indication: ATRIAL FIBRILLATION
     Route: 048
     Dates: start: 20110224, end: 20110226
  4. WARFARIN SODIUM [Concomitant]
  5. OMEPRAZOLE [Concomitant]
  6. PANTOK [Concomitant]
  7. BUDESONIDE/FORMOTEROL [Concomitant]
     Dosage: 1-0-1
  8. ATROVENT [Concomitant]
     Dosage: 3-0-3
  9. WARFARIN SODIUM [Concomitant]
  10. FUROSEMIDE [Concomitant]
     Dosage: 1-2-0
  11. ASPIRIN [Concomitant]

REACTIONS (1)
  - CARDIAC FAILURE [None]
